FAERS Safety Report 4837418-9 (Version None)
Quarter: 2005Q4

REPORT INFORMATION
  Report Type: 
  Country: None (occurrence: None)
  Receive Date: 20051128
  Receipt Date: 20051115
  Transmission Date: 20060501
  Serious: Yes (Hospitalization)
  Sender: FDA-Public Use
  Company Number: DE-JNJFOC-20051103884

PATIENT
  Age: 52 Year
  Sex: Male

DRUGS (10)
  1. HALDOL [Suspect]
     Route: 048
     Dates: start: 20050418, end: 20050509
  2. HALDOL [Suspect]
     Route: 048
     Dates: start: 20050418, end: 20050509
  3. HALDOL [Suspect]
     Route: 048
     Dates: start: 20050418, end: 20050509
  4. HALDOL [Suspect]
     Route: 048
     Dates: start: 20050418, end: 20050509
  5. ZELDOX [Suspect]
     Route: 048
  6. ZELDOX [Suspect]
     Indication: DRUG USE FOR UNKNOWN INDICATION
     Route: 048
  7. DIAZEPAM [Concomitant]
     Route: 048
  8. DIAZEPAM [Concomitant]
     Route: 048
  9. GLIBENCLAMID [Concomitant]
     Route: 048
  10. GLIBENCLAMID [Concomitant]
     Route: 048

REACTIONS (4)
  - ALANINE AMINOTRANSFERASE INCREASED [None]
  - ASPARTATE AMINOTRANSFERASE INCREASED [None]
  - BLOOD CREATINE PHOSPHOKINASE INCREASED [None]
  - BLOOD CREATININE INCREASED [None]
